FAERS Safety Report 15579835 (Version 8)
Quarter: 2019Q3

REPORT INFORMATION
  Report Type: Spontaneous
  Country: CA (occurrence: CA)
  Receive Date: 20181102
  Receipt Date: 20190823
  Transmission Date: 20191004
  Serious: Yes (Other)
  Sender: FDA-Public Use
  Company Number: CA-PFIZER INC-2015286577

PATIENT
  Age: 49 Year
  Sex: Female

DRUGS (19)
  1. IBUPROFEN SODIUM. [Concomitant]
     Active Substance: IBUPROFEN SODIUM
     Dosage: UNK
     Route: 065
  2. CELECOXIB. [Concomitant]
     Active Substance: CELECOXIB
     Dosage: 200 MG, 2X/DAY
     Route: 048
  3. METHOTREXATE SODIUM. [Suspect]
     Active Substance: METHOTREXATE SODIUM
     Indication: RHEUMATOID ARTHRITIS
     Dosage: UNK
     Route: 048
  4. HUMIRA [Suspect]
     Active Substance: ADALIMUMAB
     Dosage: UNK (SOLUTION SUBCUTANEOUS)
     Route: 058
  5. CELEBREX [Concomitant]
     Active Substance: CELECOXIB
     Dosage: 200 MG, 2X/DAY
     Route: 048
  6. RITUXAN [Suspect]
     Active Substance: RITUXIMAB
     Dosage: UNK (SOLUTION, INTRAVENOUS, NOT OTHERWISE SPECIFIED)
     Route: 042
  7. METHOTREXATE SODIUM. [Suspect]
     Active Substance: METHOTREXATE SODIUM
     Indication: RHEUMATOID ARTHRITIS
     Dosage: UNK INJECTIONS
  8. IBUPROFEN. [Concomitant]
     Active Substance: IBUPROFEN
     Dosage: UNK
     Route: 065
  9. APO-PREDNISONE [Suspect]
     Active Substance: PREDNISONE
     Dosage: 5 MG, UNK
     Route: 065
  10. HYDROMORPHONE HYDROCHLORIDE. [Concomitant]
     Active Substance: HYDROMORPHONE HYDROCHLORIDE
     Dosage: UNK
     Route: 030
  11. HYDROXYCHLOROQUINE [Concomitant]
     Active Substance: HYDROXYCHLOROQUINE
     Dosage: UNK
     Route: 065
  12. HYDROXYCHLOROQUINE SULFATE. [Concomitant]
     Active Substance: HYDROXYCHLOROQUINE SULFATE
     Dosage: UNK
  13. HYDROMORPH [Concomitant]
     Active Substance: HYDROMORPHONE
     Dosage: UNK, Q 8 HRS FREQ: 3 DAY; INTERVAL: 1.
  14. ACTEMRA [Concomitant]
     Active Substance: TOCILIZUMAB
     Dosage: UNK
     Route: 065
     Dates: start: 20150809, end: 20150809
  15. ENBREL [Suspect]
     Active Substance: ETANERCEPT
     Indication: RHEUMATOID ARTHRITIS
     Dosage: UNK
     Route: 065
  16. SIMPONI [Suspect]
     Active Substance: GOLIMUMAB
     Dosage: UNK
     Route: 065
  17. ENBREL [Suspect]
     Active Substance: ETANERCEPT
     Indication: RHEUMATOID ARTHRITIS
     Dosage: UNK
     Route: 058
  18. PREDNISONE. [Suspect]
     Active Substance: PREDNISONE
     Dosage: UNK
     Route: 065
  19. PLAQUENIL [Concomitant]
     Active Substance: HYDROXYCHLOROQUINE SULFATE
     Dosage: UNK

REACTIONS (5)
  - Nausea [Unknown]
  - Type 2 diabetes mellitus [Unknown]
  - Respiratory disorder [Unknown]
  - Drug ineffective [Unknown]
  - Rheumatoid arthritis [Not Recovered/Not Resolved]

NARRATIVE: CASE EVENT DATE: 20150818
